FAERS Safety Report 9460583 (Version 1)
Quarter: 2013Q3

REPORT INFORMATION
  Report Type: Spontaneous
  Country: US (occurrence: US)
  Receive Date: 20130815
  Receipt Date: 20130815
  Transmission Date: 20140515
  Serious: Yes (Hospitalization)
  Sender: FDA-Public Use
  Company Number: US-PFIZER INC-2013233496

PATIENT
  Sex: 0

DRUGS (2)
  1. CELEBREX [Suspect]
     Dosage: 200 MG, UNK
  2. NARDIL [Suspect]
     Dosage: 15 MG, UNK

REACTIONS (1)
  - Depression [Unknown]
